FAERS Safety Report 23124888 (Version 3)
Quarter: 2024Q1

REPORT INFORMATION
  Report Type: Spontaneous
  Country: US (occurrence: US)
  Receive Date: 20231030
  Receipt Date: 20240227
  Transmission Date: 20240410
  Serious: Yes (Other)
  Sender: FDA-Public Use
  Company Number: US-BAYER-2023A151574

PATIENT
  Age: 47 Year
  Sex: Female
  Weight: 51.701 kg

DRUGS (7)
  1. MIRENA [Suspect]
     Active Substance: LEVONORGESTREL
     Indication: Contraception
     Dosage: 20?G/DAY
     Route: 015
     Dates: start: 20210614, end: 20231018
  2. MIRENA [Suspect]
     Active Substance: LEVONORGESTREL
     Indication: Heavy menstrual bleeding
  3. LIPITOR [Concomitant]
     Active Substance: ATORVASTATIN CALCIUM
     Dosage: 10 MG, QD
     Route: 048
  4. KETOROLAC [Concomitant]
     Active Substance: KETOROLAC TROMETHAMINE
     Indication: Procedural pain
     Dosage: 10 MG, QID
     Dates: start: 20231018
  5. CIPROFLOXACIN [Concomitant]
     Active Substance: CIPROFLOXACIN
     Dosage: 500 MG
     Route: 048
     Dates: start: 20230910
  6. METRONIDAZOLE [Concomitant]
     Active Substance: METRONIDAZOLE
     Indication: Infection prophylaxis
     Dosage: 500 MG, BID
     Route: 048
     Dates: start: 20231018
  7. BIOTIN [Concomitant]
     Active Substance: BIOTIN

REACTIONS (13)
  - Device breakage [Recovered/Resolved]
  - Embedded device [Recovered/Resolved]
  - Post procedural haemorrhage [None]
  - Procedural pain [None]
  - Crying [None]
  - Stress [None]
  - Dyspareunia [None]
  - Device use issue [None]
  - Device difficult to use [None]
  - Complication of device removal [None]
  - Device physical property issue [None]
  - Device deployment issue [None]
  - Pyrexia [None]

NARRATIVE: CASE EVENT DATE: 20210614
